FAERS Safety Report 5467901-7 (Version None)
Quarter: 2007Q3

REPORT INFORMATION
  Report Type: 
  Country: None (occurrence: None)
  Receive Date: 20070926
  Receipt Date: 20070919
  Transmission Date: 20080115
  Serious: Yes (Other)
  Sender: FDA-Public Use
  Company Number: DE-JNJFOC-20070903498

PATIENT
  Sex: Female

DRUGS (4)
  1. RISPERDAL CONSTA [Suspect]
     Indication: DRUG USE FOR UNKNOWN INDICATION
     Route: 030
  2. RISPERDAL [Suspect]
     Indication: DRUG USE FOR UNKNOWN INDICATION
     Route: 048
  3. ZYPREXA [Suspect]
  4. ZYPREXA [Suspect]
     Indication: DRUG USE FOR UNKNOWN INDICATION

REACTIONS (10)
  - DIZZINESS [None]
  - DYSPNOEA [None]
  - FEELING ABNORMAL [None]
  - NAUSEA [None]
  - PAIN [None]
  - RASH [None]
  - SENSORY DISTURBANCE [None]
  - SYNCOPE [None]
  - VOMITING [None]
  - WEIGHT DECREASED [None]
